FAERS Safety Report 11824035 (Version 4)
Quarter: 2018Q4

REPORT INFORMATION
  Report Type: Spontaneous
  Country: US (occurrence: US)
  Receive Date: 20151210
  Receipt Date: 20181218
  Transmission Date: 20190204
  Serious: Yes (Hospitalization, Other)
  Sender: FDA-Public Use
  Company Number: US-DSJP-DSU-2015-125004

PATIENT

DRUGS (5)
  1. TRIBENZOR [Suspect]
     Active Substance: AMLODIPINE BESYLATE\HYDROCHLOROTHIAZIDE\OLMESARTAN MEDOXOMIL
     Indication: HYPERTENSION
     Dosage: 40/5/25MG, UNK
     Dates: start: 20110719, end: 201309
  2. BENICAR HCT [Suspect]
     Active Substance: HYDROCHLOROTHIAZIDE\OLMESARTAN MEDOXOMIL
     Indication: HYPERTENSION
     Dosage: 40/25 MG, QD
     Route: 048
     Dates: start: 20110719, end: 201309
  3. BENICAR HCT [Suspect]
     Active Substance: HYDROCHLOROTHIAZIDE\OLMESARTAN MEDOXOMIL
     Dosage: UNK, QD
     Dates: start: 20100615
  4. TRIBENZOR [Suspect]
     Active Substance: AMLODIPINE BESYLATE\HYDROCHLOROTHIAZIDE\OLMESARTAN MEDOXOMIL
     Dosage: 40/10/25, QD
     Route: 048
     Dates: start: 20130731, end: 20130811
  5. LEXAPRO [Concomitant]
     Active Substance: ESCITALOPRAM OXALATE
     Indication: PRODUCT USED FOR UNKNOWN INDICATION
     Dosage: 20 MG, QD

REACTIONS (11)
  - Sprue-like enteropathy [Recovered/Resolved]
  - Hepatic steatosis [Unknown]
  - Dyspepsia [Recovered/Resolved]
  - Dizziness [Unknown]
  - Gastroenteritis bacterial [Unknown]
  - Constipation [Recovered/Resolved]
  - Depression [Not Recovered/Not Resolved]
  - Hypotension [Recovered/Resolved]
  - Acute kidney injury [Recovered/Resolved]
  - Vision blurred [Unknown]
  - Hepatitis B [Unknown]

NARRATIVE: CASE EVENT DATE: 20101230
